FAERS Safety Report 23292887 (Version 4)
Quarter: 2024Q2

REPORT INFORMATION
  Report Type: Report from Study
  Country: CA (occurrence: CA)
  Receive Date: 20231213
  Receipt Date: 20240419
  Transmission Date: 20240716
  Serious: Yes (Other)
  Sender: FDA-Public Use
  Company Number: CA-TAKEDA-2022TUS085877

PATIENT
  Sex: Female
  Weight: 63 kg

DRUGS (2)
  1. VEDOLIZUMAB [Suspect]
     Active Substance: VEDOLIZUMAB
     Indication: Colitis ulcerative
     Dosage: 300 MILLIGRAM
     Route: 042
     Dates: start: 20221031
  2. PREDNISONE [Concomitant]
     Active Substance: PREDNISONE
     Dosage: UNK

REACTIONS (9)
  - Colitis ulcerative [Unknown]
  - Sinus congestion [Unknown]
  - Bone pain [Recovering/Resolving]
  - Pruritus genital [Recovered/Resolved]
  - Diarrhoea [Recovering/Resolving]
  - Dizziness [Unknown]
  - Constipation [Recovering/Resolving]
  - Headache [Unknown]
  - Pruritus [Recovering/Resolving]
